FAERS Safety Report 8105146-2 (Version None)
Quarter: 2012Q1

REPORT INFORMATION
  Report Type: 
  Country: None (occurrence: None)
  Receive Date: 20120201
  Receipt Date: 20111123
  Transmission Date: 20120608
  Serious: Yes (Other)
  Sender: FDA-Public Use
  Company Number: PY-ROXANE LABORATORIES, INC.-2011-EU-00427GD

PATIENT
  Sex: Male

DRUGS (6)
  1. PREDNISONE TAB [Suspect]
     Indication: PRURITUS
  2. FUROSEMIDE [Concomitant]
     Indication: CARDIAC DISORDER
  3. PREDNISONE TAB [Suspect]
     Indication: RASH ERYTHEMATOUS
     Dosage: 75 MG
  4. BETAMETASONE [Suspect]
     Indication: SKIN LESION
     Route: 061
  5. AMIODARONE HCL [Concomitant]
     Indication: CARDIAC DISORDER
  6. BETAMETASONE [Suspect]
     Indication: SKIN FISSURES

REACTIONS (2)
  - ACARODERMATITIS [None]
  - DERMATITIS EXFOLIATIVE [None]
